FAERS Safety Report 4659486-X (Version None)
Quarter: 2005Q2

REPORT INFORMATION
  Report Type: 
  Country: None (occurrence: None)
  Receive Date: 20050412
  Receipt Date: 20050309
  Transmission Date: 20051028
  Serious: No
  Sender: FDA-Public Use
  Company Number: 2005S1000040

PATIENT
  Age: 30 Year
  Sex: Male
  Weight: 113.6 kg

DRUGS (2)
  1. CUBICIN [Suspect]
     Indication: STAPHYLOCOCCAL INFECTION
     Dosage: 4 MG/KG; Q24H; IV
     Route: 042
     Dates: start: 20040208
  2. HEPARIN [Concomitant]

REACTIONS (1)
  - PHLEBITIS [None]
